FAERS Safety Report 8808656 (Version 1)
Quarter: 2012Q4

REPORT INFORMATION
  Report Type: Spontaneous
  Country: US (occurrence: None)
  Receive Date: 20120921
  Receipt Date: 20120921
  Transmission Date: 20130627
  Serious: Yes (Hospitalization)
  Sender: FDA-Public Use
  Company Number: AUR-APL-2012-04030

PATIENT
  Age: 59 Year
  Sex: Male

DRUGS (3)
  1. ALPRAZOLAM [Suspect]
     Indication: DRUG USE FOR UNKNOWN INDICATION
  2. FENTANYL [Suspect]
     Indication: DRUG USE FOR UNKNOWN INDICATION
  3. ALCOHOL [Suspect]
     Indication: DRUG USE FOR UNKNOWN INDICATION

REACTIONS (18)
  - Overdose [None]
  - Respiratory acidosis [None]
  - Hypoxia [None]
  - Blood alcohol increased [None]
  - Myocardial infarction [None]
  - Pneumonia aspiration [None]
  - Rhabdomyolysis [None]
  - Unresponsive to stimuli [None]
  - Renal failure acute [None]
  - Haemodialysis [None]
  - Cerebral ischaemia [None]
  - Agitation [None]
  - Cognitive disorder [None]
  - Speech disorder [None]
  - Memory impairment [None]
  - Judgement impaired [None]
  - Memory impairment [None]
  - Nuclear magnetic resonance imaging brain abnormal [None]
